FAERS Safety Report 8421772-5 (Version None)
Quarter: 2012Q2

REPORT INFORMATION
  Report Type: 
  Country: None (occurrence: None)
  Receive Date: 20120608
  Receipt Date: 20120605
  Transmission Date: 20120825
  Serious: Yes (Death, Other)
  Sender: FDA-Public Use
  Company Number: JP-PFIZER INC-2012118631

PATIENT
  Age: 75 Year
  Sex: Female
  Weight: 75 kg

DRUGS (3)
  1. BETAMETHASONE [Suspect]
     Indication: ASTHMA
     Dosage: 4 MG/DAY
  2. THEOPHYLLINE [Concomitant]
     Indication: ASTHMA
     Dosage: UNK
  3. SOLU-CORTEF [Suspect]
     Dosage: 400 MG/DAY

REACTIONS (3)
  - MYOPATHY [None]
  - FUNGAL SEPSIS [None]
  - COMA [None]
